FAERS Safety Report 19734646 (Version 2)
Quarter: 2021Q4

REPORT INFORMATION
  Report Type: Spontaneous
  Country: GB (occurrence: GB)
  Receive Date: 20210823
  Receipt Date: 20211005
  Transmission Date: 20220303
  Serious: Yes (Other)
  Sender: FDA-Public Use
  Company Number: GB-MHRA-EMIS-715-0D1D76A3-25CF-43BB-BD26-9A49D7B21F3C

PATIENT
  Age: 75 Year
  Sex: Male
  Weight: 84.4 kg

DRUGS (3)
  1. PREGABALIN [Suspect]
     Active Substance: PREGABALIN
     Indication: Product used for unknown indication
     Dosage: UNK, START ONE TABLET ONCE A DAY,THEN TWICE A DAY AND THREE TIME A DAY
     Route: 065
     Dates: start: 20210716
  2. DIAZEPAM [Concomitant]
     Active Substance: DIAZEPAM
     Indication: Product used for unknown indication
     Dosage: ONE TABLET 3 TIMES A DAY, THEN INCREASED IF NECESSARY TO 7.5 - 15 MG DAILY IN DIVIDED DOSES, UNK
     Route: 065
     Dates: start: 20210525
  3. PREGABALIN [Concomitant]
     Active Substance: PREGABALIN
     Indication: Product used for unknown indication
     Dosage: START ONE TABLET ONCE A DAY, THEN TWICE A DAY, AND THREE TIME A DAY, UNK
     Route: 065
     Dates: start: 20210716

REACTIONS (1)
  - Depressed level of consciousness [Recovered/Resolved]
